FAERS Safety Report 8965564 (Version 2)
Quarter: 2013Q1

REPORT INFORMATION
  Report Type: Spontaneous
  Country: RU (occurrence: None)
  Receive Date: 20121205
  Receipt Date: 20130125
  Transmission Date: 20140127
  Serious: Yes (Death, Hospitalization)
  Sender: FDA-Public Use
  Company Number: MPS1-1000841

PATIENT
  Age: 11 Year
  Sex: Female
  Weight: 17.5 kg

DRUGS (1)
  1. ALDURAZYME [Suspect]
     Indication: MUCOPOLYSACCHARIDOSIS I
     Route: 042
     Dates: start: 20081201, end: 20121115

REACTIONS (4)
  - Circulatory collapse [None]
  - Oxygen saturation decreased [None]
  - Cardiopulmonary failure [None]
  - General physical health deterioration [None]
